FAERS Safety Report 8551235-8 (Version None)
Quarter: 2012Q3

REPORT INFORMATION
  Report Type: 
  Country: None (occurrence: None)
  Receive Date: 20120730
  Receipt Date: 20120719
  Transmission Date: 20120928
  Serious: Yes (Hospitalization)
  Sender: FDA-Public Use
  Company Number: US-ELI_LILLY_AND_COMPANY-US201111002935

PATIENT
  Sex: Female

DRUGS (4)
  1. FORTEO [Suspect]
     Dosage: 20 UG, QD
     Route: 065
  2. FORTEO [Suspect]
     Dosage: 20 UG, QD
     Route: 065
  3. VITAMIN D [Concomitant]
     Dosage: 500 MG, QD
  4. FORTEO [Suspect]
     Indication: OSTEOPOROSIS
     Dosage: 20 UG, QD
     Route: 065
     Dates: start: 20111028

REACTIONS (13)
  - FATIGUE [None]
  - LISTLESS [None]
  - INJECTION SITE ERYTHEMA [None]
  - INJECTION SITE DISCOLOURATION [None]
  - BACK PAIN [None]
  - BLOOD CALCIUM INCREASED [None]
  - SCRATCH [None]
  - MYALGIA [None]
  - PAIN [None]
  - ASTHENIA [None]
  - HOSPITALISATION [None]
  - PAIN IN EXTREMITY [None]
  - INJECTION SITE HAEMATOMA [None]
